FAERS Safety Report 6202227-5 (Version None)
Quarter: 2009Q2

REPORT INFORMATION
  Report Type: 
  Country: None (occurrence: None)
  Receive Date: 20090526
  Receipt Date: 20090522
  Transmission Date: 20091009
  Serious: Yes (Hospitalization)
  Sender: FDA-Public Use
  Company Number: FR-RB-015982-09

PATIENT
  Age: 35 Year
  Sex: Male

DRUGS (1)
  1. SUBUTEX [Suspect]
     Route: 042
     Dates: end: 20081008

REACTIONS (7)
  - CHEST PAIN [None]
  - DYSPNOEA [None]
  - EXTRAVASATION [None]
  - HYPERTHERMIA [None]
  - INCORRECT ROUTE OF DRUG ADMINISTRATION [None]
  - MALAISE [None]
  - SUBSTANCE ABUSE [None]
